FAERS Safety Report 6677769-9 (Version None)
Quarter: 2010Q2

REPORT INFORMATION
  Report Type: 
  Country: None (occurrence: None)
  Receive Date: 20100409
  Receipt Date: 20100409
  Transmission Date: 20101027
  Serious: Yes (Other)
  Sender: FDA-Public Use
  Company Number: None

PATIENT
  Sex: Male
  Weight: 72.5755 kg

DRUGS (1)
  1. SULPHAMETHOXAZOLE/TRAIMETHOPRIM [Suspect]
     Indication: OTITIS EXTERNA
     Dosage: 800/160 MG 2 TABS ONLY
     Dates: start: 20100316, end: 20100317

REACTIONS (1)
  - ARTHRALGIA [None]
